FAERS Safety Report 8185402-2 (Version None)
Quarter: 2012Q1

REPORT INFORMATION
  Report Type: 
  Country: None (occurrence: None)
  Receive Date: 20120305
  Receipt Date: 20120301
  Transmission Date: 20120608
  Serious: Yes (Death, Hospitalization, Other)
  Sender: FDA-Public Use
  Company Number: PHHY2011JP105220

PATIENT
  Sex: Female
  Weight: 50 kg

DRUGS (6)
  1. SOLU-MEDROL [Concomitant]
     Dosage: 1000 MG FOR 3 DAYS
     Route: 042
     Dates: start: 20111130, end: 20111202
  2. LAMISIL [Suspect]
     Indication: TINEA INFECTION
     Dosage: 125 MG, QD
     Route: 048
     Dates: start: 20111109, end: 20111124
  3. PREDNISOLONE [Concomitant]
     Dosage: 30 MG
     Route: 048
     Dates: start: 20111203
  4. OLOPATADINE HCL [Concomitant]
     Dosage: 5 MG, QD
     Route: 048
     Dates: start: 20111109, end: 20111124
  5. PREDNISOLONE [Concomitant]
     Dosage: 40 MG
     Route: 048
     Dates: start: 20111203
  6. PREDNISOLONE [Concomitant]
     Dosage: 20 MG
     Route: 048
     Dates: start: 20111203

REACTIONS (9)
  - ASPARTATE AMINOTRANSFERASE INCREASED [None]
  - MALAISE [None]
  - RHABDOMYOLYSIS [None]
  - HEPATIC FUNCTION ABNORMAL [None]
  - ALANINE AMINOTRANSFERASE INCREASED [None]
  - DYSPNOEA EXERTIONAL [None]
  - INTERSTITIAL LUNG DISEASE [None]
  - DECREASED APPETITE [None]
  - BLOOD CREATINE PHOSPHOKINASE INCREASED [None]
